FAERS Safety Report 24144466 (Version 1)
Quarter: 2024Q3

REPORT INFORMATION
  Report Type: Report from Study
  Country: CN (occurrence: CN)
  Receive Date: 20240728
  Receipt Date: 20240728
  Transmission Date: 20241017
  Serious: Yes (Other)
  Sender: ROCHE
  Company Number: CN-ROCHE-3001440

PATIENT
  Age: 69 Year
  Sex: Male
  Weight: 58.0 kg

DRUGS (1)
  1. AVASTIN [Suspect]
     Active Substance: BEVACIZUMAB
     Indication: Colon cancer
     Dosage: STRENGTH: 100 MG
     Route: 041
     Dates: start: 20161024

REACTIONS (7)
  - Pulmonary mass [Not Recovered/Not Resolved]
  - COVID-19 [Unknown]
  - Nodule [Not Recovered/Not Resolved]
  - Nodule [Not Recovered/Not Resolved]
  - Myelosuppression [Recovering/Resolving]
  - Palmar-plantar erythrodysaesthesia syndrome [Unknown]
  - Metastases to liver [Not Recovered/Not Resolved]

NARRATIVE: CASE EVENT DATE: 20161101
